FAERS Safety Report 16162673 (Version 4)
Quarter: 2019Q2

REPORT INFORMATION
  Report Type: Report from Study
  Country: US (occurrence: US)
  Receive Date: 20190405
  Receipt Date: 20190610
  Transmission Date: 20190711
  Serious: Yes (Hospitalization)
  Sender: FDA-Public Use
  Company Number: PHHO2019US003613

PATIENT
  Age: 10 Year
  Sex: Male
  Weight: 14.4 kg

DRUGS (4)
  1. ASPIRIN. [Concomitant]
     Active Substance: ASPIRIN
     Indication: PRODUCT USED FOR UNKNOWN INDICATION
     Dosage: 50 MG, QOD
     Route: 065
  2. ZORTRESS [Suspect]
     Active Substance: EVEROLIMUS
     Indication: PROGERIA
     Dosage: 0.2 MG, QD
     Route: 048
     Dates: start: 20171212
  3. LONAFARNIB [Suspect]
     Active Substance: LONAFARNIB
     Indication: PROGERIA
     Dosage: 75 MG QD AM, 100 MG QD PM
     Route: 048
     Dates: start: 20141104
  4. DORMEC [Concomitant]
     Indication: PRODUCT USED FOR UNKNOWN INDICATION
     Dosage: 50 TO 100 MG QD
     Route: 065

REACTIONS (3)
  - Seizure [Unknown]
  - Cerebrovascular accident [Unknown]
  - Bacterial infection [Unknown]

NARRATIVE: CASE EVENT DATE: 20180715
